FAERS Safety Report 8959755 (Version 1)
Quarter: 2012Q4

REPORT INFORMATION
  Report Type: 
  Country: US (occurrence: US)
  Receive Date: 20121212
  Receipt Date: 20121212
  Transmission Date: 20130627
  Serious: No
  Sender: FDA-Public Use
  Company Number: US-TEVA-334020USA

PATIENT
  Sex: Female
  Weight: 72.64 kg

DRUGS (9)
  1. BUDESONIDE [Suspect]
     Indication: ASTHMA
     Route: 055
  2. BROVANA [Suspect]
     Indication: ASTHMA
     Route: 055
     Dates: start: 201202
  3. LEVOTHYROXINE [Concomitant]
  4. VENLAFAXINE [Concomitant]
     Dates: start: 2011
  5. IMIPRAMINE [Concomitant]
  6. LORAZEPAM [Concomitant]
     Dates: start: 2007
  7. METHOCARBAMOL [Concomitant]
  8. PRAVASTATIN [Concomitant]
  9. LISINOPRIL [Concomitant]

REACTIONS (2)
  - Oral discomfort [Not Recovered/Not Resolved]
  - Cough [Not Recovered/Not Resolved]
